FAERS Safety Report 25999261 (Version 1)
Quarter: 2025Q4

REPORT INFORMATION
  Report Type: Spontaneous
  Country: US (occurrence: US)
  Receive Date: 20251105
  Receipt Date: 20251105
  Transmission Date: 20260118
  Serious: No
  Sender: CSL BEHRING
  Company Number: US-BEH-2025223838

PATIENT
  Sex: Female
  Weight: 59.864 kg

DRUGS (1)
  1. PRIVIGEN [Suspect]
     Active Substance: HUMAN IMMUNOGLOBULIN G
     Indication: Immunodeficiency common variable
     Dosage: 35 G, Q3W
     Route: 042

REACTIONS (3)
  - Diplopia [Unknown]
  - Weight decreased [Unknown]
  - Blood pressure abnormal [Unknown]
